FAERS Safety Report 11203506 (Version 2)
Quarter: 2015Q2

REPORT INFORMATION
  Report Type: Report from Study
  Country: US (occurrence: US)
  Receive Date: 20150619
  Receipt Date: 20150624
  Transmission Date: 20150821
  Serious: Yes (Death, Other)
  Sender: FDA-Public Use
  Company Number: US-ASTELLAS-2015US020750

PATIENT
  Sex: Male

DRUGS (2)
  1. ERLOTINIB [Suspect]
     Active Substance: ERLOTINIB
     Indication: MALIGNANT RESPIRATORY TRACT NEOPLASM
  2. ERLOTINIB [Suspect]
     Active Substance: ERLOTINIB
     Indication: LUNG NEOPLASM MALIGNANT
     Route: 048

REACTIONS (3)
  - Neoplasm [Unknown]
  - Malaise [Unknown]
  - Death [Fatal]
